FAERS Safety Report 18550793 (Version 5)
Quarter: 2024Q1

REPORT INFORMATION
  Report Type: Spontaneous
  Country: US (occurrence: US)
  Receive Date: 20201126
  Receipt Date: 20240202
  Transmission Date: 20240410
  Serious: Yes (Other)
  Sender: FDA-Public Use
  Company Number: US-PFIZER INC-2020464280

PATIENT
  Age: 74 Year
  Sex: Female

DRUGS (2)
  1. AROMASIN [Suspect]
     Active Substance: EXEMESTANE
     Indication: Breast cancer female
     Dosage: 25 MG, DAILY (TAKE 1 TABLET BY MOUTH DAILY AT THE SAME TIME EACH DAY AFTER A MEAL)
     Route: 048
  2. AROMASIN [Suspect]
     Active Substance: EXEMESTANE
     Dosage: 2250 MG, 2X/DAY (TAKE 3 CAPSULES (2,250 MG TOTAL) BY MOUTH 2 (TWO) TIMES A DAY)

REACTIONS (3)
  - Second primary malignancy [Unknown]
  - Metastatic malignant melanoma [Unknown]
  - Neoplasm progression [Unknown]
